FAERS Safety Report 11365890 (Version 3)
Quarter: 2018Q3

REPORT INFORMATION
  Report Type: Spontaneous
  Country: US (occurrence: US)
  Receive Date: 20150811
  Receipt Date: 20180717
  Transmission Date: 20181010
  Serious: Yes (Hospitalization, Other)
  Sender: FDA-Public Use
  Company Number: US-DSJP-DSU-2015-124869

PATIENT
  Age: 59 Year
  Sex: Male
  Weight: 78.5 kg

DRUGS (3)
  1. BENICAR [Suspect]
     Active Substance: OLMESARTAN MEDOXOMIL
     Indication: HYPERTENSION
     Dosage: 20 MG, QD
     Dates: start: 20080503, end: 201210
  2. AZOR [Suspect]
     Active Substance: AMLODIPINE BESYLATE\OLMESARTAN MEDOXOMIL
     Indication: HYPERTENSION
     Dosage: 10?40MG ONCE DAILY
     Dates: start: 20080503, end: 201207
  3. BENICAR HCT [Suspect]
     Active Substance: HYDROCHLOROTHIAZIDE\OLMESARTAN MEDOXOMIL
     Indication: HYPERTENSION
     Dosage: 20?12.5 ONCE DAILY
     Dates: start: 20150702

REACTIONS (7)
  - Coeliac disease [Recovering/Resolving]
  - Clostridium difficile colitis [Unknown]
  - Hypernatraemia [Unknown]
  - Acute kidney injury [Unknown]
  - Inflammatory bowel disease [Recovering/Resolving]
  - Sprue-like enteropathy [Recovering/Resolving]
  - Gastrooesophageal reflux disease [Unknown]

NARRATIVE: CASE EVENT DATE: 20110908
